FAERS Safety Report 6261329-8 (Version None)
Quarter: 2009Q3

REPORT INFORMATION
  Report Type: 
  Country: None (occurrence: None)
  Receive Date: 20090709
  Receipt Date: 20080829
  Transmission Date: 20100115
  Serious: No
  Sender: FDA-Public Use
  Company Number: US-KINGPHARMUSA00001-K200801027

PATIENT
  Age: 44 Year
  Sex: Female
  Weight: 56.236 kg

DRUGS (2)
  1. LEVOXYL [Suspect]
     Indication: BASEDOW'S DISEASE
     Dosage: 100 MCG, QD
     Route: 048
     Dates: start: 20080331, end: 20080822
  2. LEVOXYL [Suspect]
     Dosage: 112 MCG, QD
     Route: 048
     Dates: start: 20080822, end: 20080825

REACTIONS (4)
  - HEADACHE [None]
  - NAUSEA [None]
  - PARAESTHESIA [None]
  - THYROID FUNCTION TEST ABNORMAL [None]
